FAERS Safety Report 7134446-8 (Version None)
Quarter: 2010Q4

REPORT INFORMATION
  Report Type: 
  Country: None (occurrence: None)
  Receive Date: 20101203
  Receipt Date: 20101130
  Transmission Date: 20110411
  Serious: Yes (Life-Threatening, Hospitalization)
  Sender: FDA-Public Use
  Company Number: PHHY2010BR81649

PATIENT
  Age: 39 Year
  Sex: Male

DRUGS (1)
  1. CATAFLAM [Suspect]
     Indication: SWELLING
     Route: 048

REACTIONS (2)
  - ANAL HAEMORRHAGE [None]
  - FEELING ABNORMAL [None]
